FAERS Safety Report 21629073 (Version 1)
Quarter: 2022Q4

REPORT INFORMATION
  Report Type: Spontaneous
  Country: US (occurrence: None)
  Receive Date: 20221122
  Receipt Date: 20221122
  Transmission Date: 20230112
  Serious: Yes (Other)
  Sender: FDA-Public Use
  Company Number: None

PATIENT
  Age: 67 Year
  Sex: Male
  Weight: 70.2 kg

DRUGS (14)
  1. FINASTERIDE [Suspect]
     Active Substance: FINASTERIDE
     Indication: Benign prostatic hyperplasia
     Route: 048
  2. LOPERAMIDE [Concomitant]
     Active Substance: LOPERAMIDE
  3. LOMOTIL [Concomitant]
     Active Substance: ATROPINE SULFATE\DIPHENOXYLATE HYDROCHLORIDE
  4. LANSOPRAZOLE [Concomitant]
     Active Substance: LANSOPRAZOLE
  5. ELIQUIS [Concomitant]
     Active Substance: APIXABAN
  6. CREON [Concomitant]
     Active Substance: PANCRELIPASE AMYLASE\PANCRELIPASE LIPASE\PANCRELIPASE PROTEASE
  7. ANTIHISTAMINES NOS [Concomitant]
     Active Substance: ANTIHISTAMINES NOS
  8. SODIUM BICARBONATE [Concomitant]
     Active Substance: SODIUM BICARBONATE
  9. DEXAMETHASONE [Concomitant]
     Active Substance: DEXAMETHASONE
  10. TAMSULOSIN [Concomitant]
     Active Substance: TAMSULOSIN
  11. Vit B-12 [Concomitant]
  12. VITAMIN D NOS [Concomitant]
     Active Substance: VITAMIN D NOS
  13. IRON [Concomitant]
     Active Substance: IRON
  14. COPPER [Concomitant]
     Active Substance: COPPER

REACTIONS (4)
  - Loss of libido [None]
  - Penile size reduced [None]
  - Erectile dysfunction [None]
  - Erectile dysfunction [None]

NARRATIVE: CASE EVENT DATE: 20191106
